FAERS Safety Report 4752878-X (Version None)
Quarter: 2005Q3

REPORT INFORMATION
  Report Type: 
  Country: None (occurrence: None)
  Receive Date: 20050823
  Receipt Date: 20050810
  Transmission Date: 20060218
  Serious: Yes (Other)
  Sender: FDA-Public Use
  Company Number: 8011374

PATIENT
  Age: 4 Year
  Sex: Male

DRUGS (3)
  1. KEPPRA [Suspect]
     Indication: CONVULSION
     Dosage: 2.5 ML 2/D PO
     Route: 048
     Dates: end: 20050629
  2. KEPPRA [Suspect]
     Indication: CONVULSION
     Dosage: 2.5 2/D PO
     Route: 048
     Dates: start: 20050630, end: 20050801
  3. KEPPRA [Suspect]
     Indication: CONVULSION
     Dosage: 2.5 ML 2/D PO
     Route: 048
     Dates: start: 20050802

REACTIONS (4)
  - BLOOD CALCIUM INCREASED [None]
  - BLOOD SODIUM INCREASED [None]
  - DRUG DISPENSING ERROR [None]
  - INCORRECT DOSE ADMINISTERED [None]
